FAERS Safety Report 10463673 (Version 1)
Quarter: 2014Q3

REPORT INFORMATION
  Report Type: Spontaneous
  Country: CN (occurrence: CN)
  Receive Date: 20140919
  Receipt Date: 20140919
  Transmission Date: 20150326
  Serious: Yes (Hospitalization)
  Sender: FDA-Public Use
  Company Number: CN-ROCHE-1464151

PATIENT
  Age: 48 Year
  Sex: Female

DRUGS (2)
  1. HERCEPTIN [Suspect]
     Active Substance: TRASTUZUMAB
     Indication: GASTRIC CANCER
     Dosage: 440MG FOR THE FIRST DOSAGE, 350MG THE OTHER TIMES
     Route: 041
     Dates: start: 201405, end: 201409
  2. PACLITAXEL. [Concomitant]
     Active Substance: PACLITAXEL
     Indication: GASTRIC CANCER
     Dosage: 100MG DAY 1, 120MG DAY 8
     Route: 065
     Dates: start: 201405, end: 201409

REACTIONS (2)
  - Pulmonary oedema [Recovering/Resolving]
  - Pleurisy [Recovering/Resolving]
